FAERS Safety Report 7943461-3 (Version None)
Quarter: 2011Q4

REPORT INFORMATION
  Report Type: 
  Country: None (occurrence: None)
  Receive Date: 20111128
  Receipt Date: 20111124
  Transmission Date: 20120403
  Serious: No
  Sender: FDA-Public Use
  Company Number: US-B.I. PHARMACEUTICALS,INC./RIDGEFIELD-2011-BP-26825BP

PATIENT
  Sex: Male

DRUGS (2)
  1. SPIRIVA [Suspect]
     Route: 048
     Dates: start: 20111124, end: 20111124
  2. SPIRIVA [Suspect]
     Route: 055

REACTIONS (1)
  - INCORRECT ROUTE OF DRUG ADMINISTRATION [None]
